FAERS Safety Report 6882706-8 (Version None)
Quarter: 2010Q3

REPORT INFORMATION
  Report Type: 
  Country: None (occurrence: None)
  Receive Date: 20100702
  Receipt Date: 20080825
  Transmission Date: 20110219
  Serious: No
  Sender: FDA-Public Use
  Company Number: 2008-00101

PATIENT
  Sex: Female
  Weight: 57.6068 kg

DRUGS (1)
  1. ZICAM COLD REMEDY GEL SWABS [Suspect]
     Indication: NASOPHARYNGITIS
     Dosage: QD X 7 DAYS
     Dates: start: 20080608, end: 20080615

REACTIONS (2)
  - AGEUSIA [None]
  - ANOSMIA [None]
